FAERS Safety Report 8218924-6 (Version None)
Quarter: 2012Q1

REPORT INFORMATION
  Report Type: 
  Country: None (occurrence: None)
  Receive Date: 20120319
  Receipt Date: 20120315
  Transmission Date: 20120608
  Serious: Yes (Death)
  Sender: FDA-Public Use
  Company Number: PHHY2012EC023163

PATIENT
  Sex: Female

DRUGS (1)
  1. STALEVO 100 [Suspect]
     Indication: PARKINSON'S DISEASE
     Dosage: 2 DF, (150/37.5/200MG 2 TABLETS DAILY)
     Route: 048
     Dates: start: 20100427

REACTIONS (1)
  - CEREBROVASCULAR ACCIDENT [None]
